FAERS Safety Report 14204152 (Version 1)
Quarter: 2017Q4

REPORT INFORMATION
  Report Type: Spontaneous
  Country: US (occurrence: US)
  Receive Date: 20171117
  Receipt Date: 20171117
  Transmission Date: 20180321
  Serious: Yes (Disabling)
  Sender: FDA-Public Use
  Company Number: None

PATIENT
  Sex: Male
  Weight: 78.3 kg

DRUGS (1)
  1. TRIAMCINOLONE ACETONIDE. [Suspect]
     Active Substance: TRIAMCINOLONE ACETONIDE
     Indication: DERMATITIS ATOPIC
     Route: 061
     Dates: start: 20070101, end: 20130501

REACTIONS (4)
  - Burning sensation [None]
  - Photosensitivity reaction [None]
  - Oedema [None]
  - Pruritus [None]

NARRATIVE: CASE EVENT DATE: 20130515
